FAERS Safety Report 21016943 (Version 3)
Quarter: 2025Q4

REPORT INFORMATION
  Report Type: Spontaneous
  Country: EU (occurrence: EU)
  Receive Date: 20220628
  Receipt Date: 20251112
  Transmission Date: 20260118
  Serious: Yes (Other)
  Sender: PFIZER
  Company Number: None

PATIENT
  Age: 11 Month
  Sex: Male

DRUGS (4)
  1. CYTOTEC [Interacting]
     Active Substance: MISOPROSTOL
     Indication: Foetal heart rate abnormal
     Dosage: 2 DF, 1X/DAY
     Route: 064
     Dates: start: 20081213, end: 20081214
  2. CYTOTEC [Interacting]
     Active Substance: MISOPROSTOL
     Indication: Labour induction
  3. AMOXICILLIN [Interacting]
     Active Substance: AMOXICILLIN
     Indication: Infection
     Dosage: 2 DF, 1X/DAY
     Route: 064
     Dates: start: 20081213, end: 20081215
  4. AMOXICILLIN [Interacting]
     Active Substance: AMOXICILLIN
     Indication: Inflammation

REACTIONS (11)
  - Foetal exposure during delivery [Unknown]
  - Birth trauma [Not Recovered/Not Resolved]
  - Insomnia [Not Recovered/Not Resolved]
  - Pain [Not Recovered/Not Resolved]
  - Decreased immune responsiveness [Not Recovered/Not Resolved]
  - Infant irritability [Not Recovered/Not Resolved]
  - Screaming [Recovered/Resolved]
  - Drug interaction [Unknown]
  - Abdominal discomfort [Recovered/Resolved with Sequelae]
  - Akathisia [Recovered/Resolved with Sequelae]
  - Mental disorder [Recovered/Resolved with Sequelae]

NARRATIVE: CASE EVENT DATE: 20080101
